FAERS Safety Report 4596580-6 (Version None)
Quarter: 2005Q1

REPORT INFORMATION
  Report Type: 
  Country: None (occurrence: None)
  Receive Date: 20050228
  Receipt Date: 20050214
  Transmission Date: 20050727
  Serious: Yes (Other)
  Sender: FDA-Public Use
  Company Number: HQWYE357616FEB05

PATIENT
  Sex: Female

DRUGS (6)
  1. DIAMOX [Suspect]
     Indication: GLAUCOMA
     Dosage: 250 MG 1X PER 1 DAY ORAL
     Route: 048
     Dates: start: 20041123, end: 20050203
  2. DIAMOX [Suspect]
     Indication: INTRAOCULAR PRESSURE INCREASED
     Dosage: 250 MG 1X PER 1 DAY ORAL
     Route: 048
     Dates: start: 20041123, end: 20050203
  3. PRED-FORTE (PREDNISOLONE ACETATE) [Concomitant]
  4. NIMESULIDE (NIMESULIDE) [Concomitant]
  5. CIPRO [Concomitant]
  6. POTASSIUM CHLORIDE [Concomitant]

REACTIONS (3)
  - BRADYCARDIA [None]
  - CARDIAC FAILURE [None]
  - PARAESTHESIA [None]
